FAERS Safety Report 8866677 (Version 1)
Quarter: 2012Q4

REPORT INFORMATION
  Report Type: 
  Country: US (occurrence: US)
  Receive Date: 20121025
  Receipt Date: 20121025
  Transmission Date: 20130627
  Serious: No
  Sender: FDA-Public Use
  Company Number: US-AMGEN-USASP2012013150

PATIENT
  Age: 62 Year
  Sex: Female

DRUGS (11)
  1. ENBREL [Suspect]
     Indication: PRODUCT USED FOR UNKNOWN INDICATION
     Dosage: 50 mg, qwk
     Route: 058
  2. TYLENOL COLD                       /00384601/ [Concomitant]
     Dosage: UNK
  3. PREDNISONE [Concomitant]
     Dosage: 10 mg, UNK
  4. METHOTREXATE [Concomitant]
     Dosage: 2.5 mg, UNK
  5. DIOVAN [Concomitant]
     Dosage: 160 mg, UNK
  6. CARVEDILOL [Concomitant]
     Dosage: 3.125 mg, UNK
  7. OMEPRAZOLE [Concomitant]
     Dosage: 20 mg, UNK
  8. SIMVASTATIN [Concomitant]
     Dosage: 5 mg, UNK
  9. ALEVE [Concomitant]
     Dosage: 220 mg, UNK
  10. ZETIA [Concomitant]
     Dosage: 10 mg, UNK
  11. ECOTRIN [Concomitant]
     Dosage: 325 mg, UNK

REACTIONS (3)
  - Sinus disorder [Unknown]
  - Pneumonia [Unknown]
  - Bronchitis [Unknown]
